FAERS Safety Report 4531456-1 (Version None)
Quarter: 2004Q4

REPORT INFORMATION
  Report Type: 
  Country: None (occurrence: None)
  Receive Date: 20041216
  Receipt Date: 20041207
  Transmission Date: 20050328
  Serious: Yes (Hospitalization)
  Sender: FDA-Public Use
  Company Number: USA-2004-0017929

PATIENT
  Age: 46 Year
  Sex: Male

DRUGS (3)
  1. OXYCONTIN [Suspect]
     Indication: PAIN
     Dosage: SEE TEXT
     Dates: start: 19990101
  2. HYDROMORPHONE HCL (SIMILAR TO NDA 21-044)(HYDROMORPHONE HYDROCHLORIDE) [Suspect]
     Dosage: INTRATHECAL
     Route: 039
     Dates: start: 20040801
  3. OXYGEN (OXYGEN) [Concomitant]

REACTIONS (5)
  - DYSPNOEA [None]
  - OEDEMA PERIPHERAL [None]
  - OXYGEN SATURATION DECREASED [None]
  - PITTING OEDEMA [None]
  - SPINAL OSTEOARTHRITIS [None]
